FAERS Safety Report 25076346 (Version 1)
Quarter: 2025Q1

REPORT INFORMATION
  Report Type: Spontaneous
  Country: US (occurrence: US)
  Receive Date: 20250313
  Receipt Date: 20250313
  Transmission Date: 20250408
  Serious: Yes (Life-Threatening, Hospitalization, Other)
  Sender: PFIZER
  Company Number: US-PFIZER INC-PV202500029376

PATIENT
  Age: 28 Year
  Sex: Female

DRUGS (2)
  1. BUPIVACAINE HYDROCHLORIDE [Suspect]
     Active Substance: BUPIVACAINE HYDROCHLORIDE
     Indication: Local anaesthesia
     Route: 037
  2. DEXTROSE [Suspect]
     Active Substance: DEXTROSE MONOHYDRATE
     Route: 037

REACTIONS (6)
  - Hypercapnia [Unknown]
  - Oxygen saturation decreased [Unknown]
  - Blood bicarbonate increased [Unknown]
  - Hypoxia [Unknown]
  - Somnolence [Unknown]
  - Off label use [Unknown]
